FAERS Safety Report 26112363 (Version 3)
Quarter: 2025Q4

REPORT INFORMATION
  Report Type: Spontaneous
  Country: US (occurrence: US)
  Receive Date: 20251202
  Receipt Date: 20251216
  Transmission Date: 20260118
  Serious: Yes (Life-Threatening, Hospitalization, Other)
  Sender: TORRENT PHARMA INC.
  Company Number: US-TORRENT-00014634

PATIENT
  Age: 55 Year
  Sex: Female
  Weight: 130 kg

DRUGS (6)
  1. PRAMIPEXOLE [Suspect]
     Active Substance: PRAMIPEXOLE
     Indication: Restless legs syndrome
     Route: 048
     Dates: start: 201906, end: 201912
  2. BUPROPION [Concomitant]
     Active Substance: BUPROPION
     Indication: Product used for unknown indication
     Route: 065
  3. BUSPIRONE [Concomitant]
     Active Substance: BUSPIRONE HYDROCHLORIDE
     Indication: Product used for unknown indication
     Route: 065
  4. GABAPENTIN [Concomitant]
     Active Substance: GABAPENTIN
     Indication: Product used for unknown indication
     Route: 065
  5. TOPIRAMATE [Concomitant]
     Active Substance: TOPIRAMATE
     Indication: Product used for unknown indication
     Route: 065
  6. VENLAFAXINE [Concomitant]
     Active Substance: VENLAFAXINE HYDROCHLORIDE
     Indication: Product used for unknown indication
     Route: 065

REACTIONS (10)
  - Suicidal ideation [Recovered/Resolved]
  - Restless leg augmentation syndrome [Recovered/Resolved]
  - Hallucination, tactile [Recovered/Resolved]
  - Dermatillomania [Recovered/Resolved]
  - Hallucination, auditory [Recovered/Resolved]
  - Impulse-control disorder [Recovered/Resolved]
  - Major depression [Recovered/Resolved]
  - Depression [Recovered/Resolved]
  - Overdose [Unknown]
  - Medication error [Unknown]

NARRATIVE: CASE EVENT DATE: 20190801
